FAERS Safety Report 18714255 (Version 2)
Quarter: 2021Q2

REPORT INFORMATION
  Report Type: Spontaneous
  Country: US (occurrence: US)
  Receive Date: 20210108
  Receipt Date: 20210430
  Transmission Date: 20210717
  Serious: Yes (Hospitalization, Other)
  Sender: FDA-Public Use
  Company Number: US-DRREDDYS-USA/USA/20/0130637

PATIENT
  Age: 73 Year
  Sex: Female

DRUGS (3)
  1. OCTREOTIDE. [Suspect]
     Active Substance: OCTREOTIDE
     Indication: METASTATIC CARCINOID TUMOUR
     Dates: end: 201706
  2. CITALOPRAM [Suspect]
     Active Substance: CITALOPRAM HYDROBROMIDE
     Indication: MAJOR DEPRESSION
     Dates: start: 2018
  3. OCTREOTIDE. [Suspect]
     Active Substance: OCTREOTIDE
     Indication: METASTASIS

REACTIONS (7)
  - Carcinoid syndrome [Unknown]
  - Carcinoid heart disease [Unknown]
  - Aortic valve incompetence [Unknown]
  - Pulmonary valve incompetence [Unknown]
  - Tricuspid valve incompetence [Unknown]
  - Disease progression [Unknown]
  - Cardiac failure acute [Unknown]

NARRATIVE: CASE EVENT DATE: 2018
